FAERS Safety Report 24839318 (Version 2)
Quarter: 2025Q1

REPORT INFORMATION
  Report Type: Spontaneous
  Country: JP (occurrence: JP)
  Receive Date: 20250114
  Receipt Date: 20250211
  Transmission Date: 20250409
  Serious: Yes (Death, Other)
  Sender: ALEXION PHARMACEUTICALS
  Company Number: JP-ASTRAZENECA-250002910_013820_P_1

PATIENT
  Age: 61 Year

DRUGS (2)
  1. ACALABRUTINIB [Suspect]
     Active Substance: ACALABRUTINIB
     Indication: Chronic lymphocytic leukaemia
  2. ACALABRUTINIB [Suspect]
     Active Substance: ACALABRUTINIB

REACTIONS (1)
  - Infection [Fatal]
